FAERS Safety Report 13092249 (Version 8)
Quarter: 2018Q1

REPORT INFORMATION
  Report Type: Report from Study
  Country: BR (occurrence: BR)
  Receive Date: 20170106
  Receipt Date: 20180215
  Transmission Date: 20180508
  Serious: Yes (Other)
  Sender: FDA-Public Use
  Company Number: BR-TAKEDA-2016TUS019225

PATIENT
  Age: 54 Year
  Sex: Female

DRUGS (2)
  1. VEDOLIZUMAB [Suspect]
     Active Substance: VEDOLIZUMAB
     Indication: CROHN^S DISEASE
     Dosage: 300 MG, UNK
     Route: 042
     Dates: start: 20160912
  2. VEDOLIZUMAB [Suspect]
     Active Substance: VEDOLIZUMAB
     Dosage: 300 MG, UNK
     Route: 042

REACTIONS (15)
  - Malaise [Unknown]
  - Oropharyngeal discomfort [Recovered/Resolved]
  - Off label use [Unknown]
  - Pain [Unknown]
  - Abdominal distension [Unknown]
  - Arthralgia [Unknown]
  - Pharyngitis [Unknown]
  - Pyrexia [Unknown]
  - Fatigue [Unknown]
  - Surgery [Unknown]
  - Nasopharyngitis [Unknown]
  - Nasal congestion [Unknown]
  - Drug dose omission [Unknown]
  - Secretion discharge [Unknown]
  - Back pain [Unknown]

NARRATIVE: CASE EVENT DATE: 20160921
